FAERS Safety Report 8366317-3 (Version None)
Quarter: 2012Q2

REPORT INFORMATION
  Report Type: 
  Country: None (occurrence: None)
  Receive Date: 20120517
  Receipt Date: 20120514
  Transmission Date: 20120825
  Serious: Yes (Death, Hospitalization)
  Sender: FDA-Public Use
  Company Number: PHHY2012BR020897

PATIENT
  Sex: Female

DRUGS (3)
  1. METFORMIN HCL [Concomitant]
     Dosage: 1 DF, QD
  2. LEVODOPA [Concomitant]
     Dosage: 1 TABLET AT MORNING AND FROM MIDDAY TO 18 HOURS HALF TABLET EVERY 2 HR.
  3. EXELON [Suspect]
     Indication: PARKINSON'S DISEASE
     Dosage: 9.5 MG / 24 HOURS (18 MG/ 10 CM2)
     Route: 062
     Dates: end: 20110101

REACTIONS (7)
  - HYPOGLYCAEMIA [None]
  - CEREBRAL INFARCTION [None]
  - POOR QUALITY SLEEP [None]
  - SEPSIS [None]
  - GASTROENTERITIS [None]
  - CONFUSIONAL STATE [None]
  - URINARY TRACT INFECTION [None]
